FAERS Safety Report 18517600 (Version 1)
Quarter: 2020Q4

REPORT INFORMATION
  Report Type: Spontaneous
  Country: US (occurrence: US)
  Receive Date: 20201118
  Receipt Date: 20201118
  Transmission Date: 20210114
  Serious: Yes (Death, Hospitalization, Other)
  Sender: FDA-Public Use
  Company Number: US-MICRO LABS LIMITED-ML2020-03444

PATIENT
  Age: 3 Decade
  Sex: Female

DRUGS (3)
  1. BUPROPION. [Suspect]
     Active Substance: BUPROPION
  2. ALPRAZOLAM. [Suspect]
     Active Substance: ALPRAZOLAM
  3. SYNTHETIC CANNABINOIDS [Suspect]
     Active Substance: CANNABINOID, SYNTHETIC (NOS)

REACTIONS (6)
  - Generalised tonic-clonic seizure [Unknown]
  - Respiratory failure [Fatal]
  - Toxicity to various agents [Fatal]
  - Cardiac arrest [Unknown]
  - Depressed level of consciousness [Unknown]
  - Acute respiratory distress syndrome [Fatal]
